FAERS Safety Report 13596338 (Version 1)
Quarter: 2017Q2

REPORT INFORMATION
  Report Type: Spontaneous
  Country: US (occurrence: US)
  Receive Date: 20170531
  Receipt Date: 20170531
  Transmission Date: 20170830
  Serious: No
  Sender: FDA-Public Use
  Company Number: US-JNJFOC-20170410198

PATIENT
  Sex: Female

DRUGS (2)
  1. TYLENOL REGULAR STRENGTH [Suspect]
     Active Substance: ACETAMINOPHEN
     Indication: PAIN
     Route: 065
  2. TYLENOL PM CAPLETS [Concomitant]
     Indication: PAIN
     Dosage: ONE AT NIGHT

REACTIONS (2)
  - Contraindicated product administered [Unknown]
  - Incorrect dose administered [Unknown]
